FAERS Safety Report 7539851-3 (Version None)
Quarter: 2011Q2

REPORT INFORMATION
  Report Type: 
  Country: None (occurrence: None)
  Receive Date: 20110610
  Receipt Date: 20110531
  Transmission Date: 20111010
  Serious: Yes (Other)
  Sender: FDA-Public Use
  Company Number: FR-SANOFI-AVENTIS-2011SA035355

PATIENT
  Age: 60 Year
  Sex: Male

DRUGS (1)
  1. MULTAQ [Suspect]

REACTIONS (3)
  - RENAL FAILURE ACUTE [None]
  - PRURITUS [None]
  - OEDEMA PERIPHERAL [None]
